FAERS Safety Report 4366946-8 (Version None)
Quarter: 2004Q2

REPORT INFORMATION
  Report Type: 
  Country: None (occurrence: None)
  Receive Date: 20040527
  Receipt Date: 20040527
  Transmission Date: 20050107
  Serious: Yes (Hospitalization)
  Sender: FDA-Public Use
  Company Number: None

PATIENT
  Age: 65 Year
  Sex: Male
  Weight: 85.9 kg

DRUGS (2)
  1. ASPIRIN [Suspect]
     Indication: CORONARY ARTERY DISEASE
     Dosage: 81MG DAILY ORAL
     Route: 048
  2. EXCEDRIN (MIGRAINE) [Suspect]
     Indication: HEADACHE
     Dosage: 1 TABLET 8-12 TABS ORAL
     Route: 048
     Dates: start: 20031201, end: 20040313

REACTIONS (6)
  - FALL [None]
  - FEELING ABNORMAL [None]
  - GASTROINTESTINAL HAEMORRHAGE [None]
  - HAEMORRHOIDS [None]
  - HEAD INJURY [None]
  - LOSS OF CONSCIOUSNESS [None]
